FAERS Safety Report 7503935-6 (Version None)
Quarter: 2011Q2

REPORT INFORMATION
  Report Type: 
  Country: None (occurrence: None)
  Receive Date: 20110525
  Receipt Date: 20110510
  Transmission Date: 20111010
  Serious: No
  Sender: FDA-Public Use
  Company Number: US-B.I. PHARMACEUTICALS,INC./RIDGEFIELD-2011-BP-12756BP

PATIENT
  Age: 82 Year
  Sex: Female

DRUGS (5)
  1. BYSTOLIC [Concomitant]
     Indication: CARDIAC DISORDER
     Route: 048
     Dates: start: 20110418
  2. SIMVASTATIN [Concomitant]
     Indication: BLOOD CHOLESTEROL INCREASED
     Route: 048
  3. PRADAXA [Suspect]
     Indication: ATRIAL FIBRILLATION
     Dosage: 300 MG
     Route: 048
     Dates: start: 20110429, end: 20110506
  4. PRADAXA [Suspect]
     Dosage: 150 MG
     Route: 048
     Dates: start: 20110506
  5. ENALAPRIL MALEATE [Concomitant]
     Indication: HYPERTENSION
     Route: 048

REACTIONS (4)
  - INTERNATIONAL NORMALISED RATIO INCREASED [None]
  - DECREASED APPETITE [None]
  - HAEMATURIA [None]
  - ASTHENIA [None]
